FAERS Safety Report 4766501-1 (Version None)
Quarter: 2005Q3

REPORT INFORMATION
  Report Type: 
  Country: None (occurrence: None)
  Receive Date: 20050909
  Receipt Date: 20050906
  Transmission Date: 20060218
  Serious: Yes (Hospitalization)
  Sender: FDA-Public Use
  Company Number: HQ9764904JAN2002

PATIENT
  Age: 49 Year
  Sex: Female

DRUGS (5)
  1. EFFEXOR [Suspect]
     Indication: DYSTHYMIC DISORDER
     Dosage: 2 DOSES DAILY ORAL
     Route: 048
     Dates: start: 20000715, end: 20010921
  2. PRAXINOR (CAFEDRINE HYDROCHLORIDE/THEODRENALINE HYDROCHLORIDE,) [Suspect]
     Dosage: 2 TABLET 2X PER 1 DAY ORAL
     Route: 048
     Dates: start: 20010707, end: 20010921
  3. ALDACTONE [Concomitant]
  4. PRAZEPAM [Concomitant]
  5. LEVOTHYROXINE SODIUM [Concomitant]

REACTIONS (3)
  - CONVULSION [None]
  - MALAISE [None]
  - ROAD TRAFFIC ACCIDENT [None]
